FAERS Safety Report 8923196 (Version 1)
Quarter: 2012Q4

REPORT INFORMATION
  Report Type: Spontaneous
  Country: US (occurrence: None)
  Receive Date: 20121115
  Receipt Date: 20121115
  Transmission Date: 20130627
  Serious: Yes (Death)
  Sender: FDA-Public Use
  Company Number: 2012CT000024

PATIENT
  Age: 83 Year
  Sex: Female

DRUGS (6)
  1. KORLYM [Suspect]
     Indication: CUSHING^S SYNDROME
     Route: 048
     Dates: start: 20120725
  2. METOPROLOL [Concomitant]
  3. CITALOPRAM [Concomitant]
  4. LEVOTHYROXIN [Concomitant]
  5. GLIPIZIDE [Concomitant]
  6. AMLODIPINE [Concomitant]

REACTIONS (3)
  - Hepatic cancer [None]
  - Cervical vertebral fracture [None]
  - Fall [None]
